FAERS Safety Report 21242874 (Version 1)
Quarter: 2022Q3

REPORT INFORMATION
  Report Type: Spontaneous
  Country: US (occurrence: US)
  Receive Date: 20220823
  Receipt Date: 20220823
  Transmission Date: 20221026
  Serious: No
  Sender: FDA-Public Use
  Company Number: US-TAKEDA-2022TUS057725

PATIENT

DRUGS (2)
  1. EXKIVITY [Suspect]
     Active Substance: MOBOCERTINIB
     Indication: EGFR gene mutation
     Dosage: 160 MILLIGRAM, QD
     Route: 065
  2. EXKIVITY [Suspect]
     Active Substance: MOBOCERTINIB
     Dosage: 40 MILLIGRAM, QD
     Route: 065

REACTIONS (4)
  - Diarrhoea [Unknown]
  - Fatigue [Unknown]
  - Nausea [Unknown]
  - Rash [Unknown]
